FAERS Safety Report 5681681-1 (Version None)
Quarter: 2008Q1

REPORT INFORMATION
  Report Type: 
  Country: None (occurrence: None)
  Receive Date: 20080326
  Receipt Date: 20070305
  Transmission Date: 20080703
  Serious: No
  Sender: FDA-Public Use
  Company Number: US-BAYER-US-2007-007883

PATIENT
  Age: 33 Year
  Sex: Female
  Weight: 112 kg

DRUGS (3)
  1. MIRENA [Suspect]
     Route: 015
     Dates: start: 20070201, end: 20070323
  2. VITAMIN TAB [Concomitant]
     Route: 048
  3. ZOLOFT [Concomitant]
     Route: 048

REACTIONS (1)
  - IUCD COMPLICATION [None]
